FAERS Safety Report 6666693-3 (Version None)
Quarter: 2010Q2

REPORT INFORMATION
  Report Type: 
  Country: None (occurrence: None)
  Receive Date: 20100405
  Receipt Date: 20100302
  Transmission Date: 20101027
  Serious: No
  Sender: FDA-Public Use
  Company Number: US-BAYER-201018130GPV

PATIENT
  Age: 39 Year
  Sex: Male

DRUGS (6)
  1. SORAFENIB [Suspect]
     Indication: THYROID CANCER METASTATIC
     Route: 065
     Dates: start: 20080801, end: 20080901
  2. SORAFENIB [Suspect]
     Route: 065
     Dates: start: 20081014, end: 20090501
  3. TEMOZOLOMIDE [Concomitant]
     Indication: NEUROENDOCRINE CARCINOMA
     Route: 065
     Dates: start: 20070101, end: 20071201
  4. OCTREOTIDE ACETATE [Concomitant]
     Indication: HYPERCALCAEMIA
     Route: 065
     Dates: start: 20071201
  5. OPIUM [Concomitant]
     Indication: HYPERCALCAEMIA
     Route: 065
     Dates: start: 20071201
  6. SUNITINIB MALATE [Concomitant]
     Indication: NEUROENDOCRINE CARCINOMA
     Route: 065
     Dates: start: 20071201, end: 20080801

REACTIONS (1)
  - FATIGUE [None]
